FAERS Safety Report 10994661 (Version 1)
Quarter: 2015Q2

REPORT INFORMATION
  Report Type: Spontaneous
  Country: US (occurrence: None)
  Receive Date: 20150406
  Receipt Date: 20150406
  Transmission Date: 20150821
  Serious: No
  Sender: FDA-Public Use
  Company Number: None

PATIENT
  Age: 78 Year
  Sex: Female
  Weight: 56.7 kg

DRUGS (12)
  1. CELEBREX [Concomitant]
     Active Substance: CELECOXIB
  2. CENTRUM +50 FEMALE [Concomitant]
  3. OMEGA 3 [Concomitant]
     Active Substance: OMEGA-3 FATTY ACIDS
  4. CELECOXIB. [Suspect]
     Active Substance: CELECOXIB
     Indication: SPINAL COLUMN STENOSIS
     Dosage: 1 ONCE DAILY TAKEN BY MOUTH
     Route: 048
     Dates: start: 20150101, end: 20150315
  5. CELECOXIB. [Suspect]
     Active Substance: CELECOXIB
     Indication: ARTHRALGIA
     Dosage: 1 ONCE DAILY TAKEN BY MOUTH
     Route: 048
     Dates: start: 20150101, end: 20150315
  6. RESTASIS [Concomitant]
     Active Substance: CYCLOSPORINE
  7. CALCIUM D+K [Concomitant]
  8. FOLIC ACID. [Concomitant]
     Active Substance: FOLIC ACID
  9. VITAMIN C [Concomitant]
     Active Substance: ASCORBIC ACID
  10. BIOTIN [Concomitant]
     Active Substance: BIOTIN
  11. CRANBERRY. [Concomitant]
     Active Substance: CRANBERRY
  12. CELECOXIB. [Suspect]
     Active Substance: CELECOXIB
     Indication: SCOLIOSIS
     Dosage: 1 ONCE DAILY TAKEN BY MOUTH
     Route: 048
     Dates: start: 20150101, end: 20150315

REACTIONS (6)
  - Arthralgia [None]
  - Product substitution issue [None]
  - Drug effect decreased [None]
  - Dyspepsia [None]
  - Condition aggravated [None]
  - Product quality issue [None]
